FAERS Safety Report 22265508 (Version 1)
Quarter: 2023Q2

REPORT INFORMATION
  Report Type: Spontaneous
  Country: US (occurrence: None)
  Receive Date: 20230426
  Receipt Date: 20230426
  Transmission Date: 20230722
  Serious: No
  Sender: FDA-Public Use
  Company Number: None

PATIENT
  Age: 42 Year
  Sex: Male
  Weight: 135.17 kg

DRUGS (1)
  1. LATUDA [Suspect]
     Active Substance: LURASIDONE HYDROCHLORIDE
     Indication: Affective disorder

REACTIONS (5)
  - Fatigue [None]
  - Product substitution issue [None]
  - Agitation [None]
  - Anger [None]
  - Depression [None]

NARRATIVE: CASE EVENT DATE: 20230321
